FAERS Safety Report 25996940 (Version 1)
Quarter: 2025Q4

REPORT INFORMATION
  Report Type: Spontaneous
  Country: US (occurrence: US)
  Receive Date: 20251104
  Receipt Date: 20251104
  Transmission Date: 20260117
  Serious: Yes (Death)
  Sender: SCILEX PHARMACEUTICALS INC.
  Company Number: US-SCILEX PHARMACEUTICALS INC.-US-SOR-25-00238

PATIENT

DRUGS (1)
  1. LIDOCAINE [Suspect]
     Active Substance: LIDOCAINE
     Indication: Thermal burn
     Dosage: UNK, UNK
     Route: 061

REACTIONS (3)
  - Death [Fatal]
  - Off label use [Unknown]
  - Accidental overdose [Unknown]
